FAERS Safety Report 19654342 (Version 1)
Quarter: 2021Q3

REPORT INFORMATION
  Report Type: Spontaneous
  Country: US (occurrence: US)
  Receive Date: 20210804
  Receipt Date: 20210804
  Transmission Date: 20211014
  Serious: Yes (Hospitalization, Other)
  Sender: FDA-Public Use
  Company Number: US-HIKMA PHARMACEUTICALS USA INC.-US-H14001-21-55069

PATIENT
  Age: 43 Year
  Sex: Female
  Weight: 57.7 kg

DRUGS (1)
  1. DOXYCYCLINE. [Suspect]
     Active Substance: DOXYCYCLINE
     Indication: ACNE
     Route: 065

REACTIONS (5)
  - Cholestasis [Recovered/Resolved]
  - Portal fibrosis [Recovered/Resolved]
  - Jaundice [Recovered/Resolved]
  - Cholelithiasis [Recovered/Resolved]
  - Cholestatic liver injury [Recovered/Resolved]
